FAERS Safety Report 9845393 (Version 2)
Quarter: 2014Q2

REPORT INFORMATION
  Report Type: Spontaneous
  Country: US (occurrence: None)
  Receive Date: 20140122
  Receipt Date: 20140404
  Transmission Date: 20141212
  Serious: Yes (Other)
  Sender: FDA-Public Use
  Company Number: JPI-P-029757

PATIENT
  Age: 61 Year
  Sex: Female
  Weight: 89.8 kg

DRUGS (14)
  1. XYREM [Suspect]
     Indication: SLEEP DISORDER
     Route: 048
     Dates: start: 200710, end: 2007
  2. XYREM [Suspect]
     Indication: FIBROMYALGIA
     Route: 048
     Dates: start: 200710, end: 2007
  3. ATENOLOL (ATENOLOL) [Concomitant]
  4. ATORVASTATIN (ATORVASTATIN) [Concomitant]
  5. HYDROCHLOROTHIAZIDE (HYDROCHLOROTHIAZIDE) [Concomitant]
  6. TRAMADOL (TRAMADOL) [Concomitant]
  7. LYRICA (PREGABALIN) [Concomitant]
  8. NIACIN (NICOTINIC ACID) [Concomitant]
  9. NORVASC (AMLODIPINE BESILATE) [Concomitant]
  10. PAXIL (PAROXETINE HYDROCHLORIDE) [Concomitant]
  11. PRILOSEC (OMEPRAZOLE) [Concomitant]
  12. SAVELLA (MILNACIPRAN HYDROCHLORIDE) [Concomitant]
  13. SKELAXIN (METAXALONE) [Concomitant]
  14. VOLTAREN (DICLOFENAC SODIUM) [Concomitant]

REACTIONS (5)
  - Spinal column stenosis [None]
  - Osteoarthritis [None]
  - Surgery [None]
  - Back pain [None]
  - Off label use [None]
